FAERS Safety Report 14502971 (Version 1)
Quarter: 2018Q1

REPORT INFORMATION
  Report Type: Spontaneous
  Country: US (occurrence: US)
  Receive Date: 20180207
  Receipt Date: 20180207
  Transmission Date: 20180509
  Serious: Yes (Death)
  Sender: FDA-Public Use
  Company Number: None

PATIENT
  Age: 74 Year
  Sex: Female

DRUGS (1)
  1. TOBRAMYCIN 300MG/5ML TEVA PHARMACEUTICALS USA INC [Suspect]
     Active Substance: TOBRAMYCIN
     Indication: BRONCHIECTASIS
     Dosage: 300MG/5ML TWICE DAILY INHALED VIA NEBULIZER
     Route: 055
     Dates: start: 20130908, end: 20171207

REACTIONS (1)
  - Death [None]

NARRATIVE: CASE EVENT DATE: 20180106
